FAERS Safety Report 23019639 (Version 2)
Quarter: 2023Q4

REPORT INFORMATION
  Report Type: Spontaneous
  Country: US (occurrence: US)
  Receive Date: 20231003
  Receipt Date: 20231011
  Transmission Date: 20240110
  Serious: Yes (Other)
  Sender: FDA-Public Use
  Company Number: US-SPECGX-T202301902

PATIENT
  Sex: Male
  Weight: 104 kg

DRUGS (4)
  1. ACETAMINOPHEN\HYDROCODONE [Suspect]
     Active Substance: ACETAMINOPHEN\HYDROCODONE
     Indication: Pain
     Dosage: 7.5/325 MG, 4 TIMES A DAY
     Route: 048
     Dates: start: 201806
  2. ACETAMINOPHEN\HYDROCODONE [Suspect]
     Active Substance: ACETAMINOPHEN\HYDROCODONE
     Dosage: 7.5/325 MG
     Route: 048
     Dates: start: 20230906
  3. PHENTERMINE [Suspect]
     Active Substance: PHENTERMINE
     Indication: Weight increased
     Dosage: UNK, ONCE A DAY
     Route: 065
  4. VITAMIN B12 [Concomitant]
     Active Substance: CYANOCOBALAMIN
     Indication: Product used for unknown indication
     Dosage: UNK, ONCE A DAY
     Route: 065

REACTIONS (6)
  - Eye operation [Unknown]
  - Peripheral swelling [Unknown]
  - Fluid retention [Not Recovered/Not Resolved]
  - Hypertension [Not Recovered/Not Resolved]
  - Intentional product use issue [Unknown]
  - Drug ineffective [Unknown]

NARRATIVE: CASE EVENT DATE: 20200101
